FAERS Safety Report 12727762 (Version 1)
Quarter: 2016Q3

REPORT INFORMATION
  Report Type: Spontaneous
  Country: US (occurrence: US)
  Receive Date: 20160909
  Receipt Date: 20160909
  Transmission Date: 20161109
  Serious: Yes (Death, Hospitalization, Other)
  Sender: FDA-Public Use
  Company Number: US-STRIDES ARCOLAB LIMITED-2016SP013095

PATIENT

DRUGS (16)
  1. MYCOPHENOLATE MOFETIL. [Suspect]
     Active Substance: MYCOPHENOLATE MOFETIL
     Indication: IMMUNOSUPPRESSION
     Dosage: 1000 MG, BID
     Route: 048
  2. MYCOPHENOLATE MOFETIL. [Suspect]
     Active Substance: MYCOPHENOLATE MOFETIL
     Dosage: UNK
  3. TACROLIMUS. [Suspect]
     Active Substance: TACROLIMUS
     Indication: IMMUNOSUPPRESSION
     Dosage: 3 MG, BID
     Route: 048
  4. TACROLIMUS. [Suspect]
     Active Substance: TACROLIMUS
     Dosage: 4 MG/DAY
     Dates: start: 20110401, end: 201105
  5. TACROLIMUS. [Suspect]
     Active Substance: TACROLIMUS
     Dosage: 2MG/DAY
     Dates: start: 20110601, end: 201111
  6. METHYLPREDNISOLONE. [Concomitant]
     Active Substance: METHYLPREDNISOLONE
     Dosage: 250 MG (ON POST-TRANSPLANT DAY ONE)
     Route: 042
  7. TACROLIMUS. [Suspect]
     Active Substance: TACROLIMUS
     Dosage: 6 MG/DAY
     Dates: start: 20110301
  8. ALEMTUZUMAB [Concomitant]
     Active Substance: ALEMTUZUMAB
     Indication: IMMUNOSUPPRESSION
     Dosage: UNK
  9. METHYLPREDNISOLONE. [Concomitant]
     Active Substance: METHYLPREDNISOLONE
     Indication: IMMUNOSUPPRESSION
     Dosage: 500 MG (ON THE DAY OF TRANSPLANT)
     Route: 042
  10. METHYLPREDNISOLONE. [Concomitant]
     Active Substance: METHYLPREDNISOLONE
     Dosage: 125 MG (ON POST-TRANSPLANT DAY TWO)
     Route: 042
  11. MYCOPHENOLATE MOFETIL. [Suspect]
     Active Substance: MYCOPHENOLATE MOFETIL
     Dosage: 1000 MG/DAY
     Route: 048
     Dates: start: 20110301, end: 201104
  12. IMMUNE GLOBULIN [Suspect]
     Active Substance: HUMAN IMMUNOGLOBULIN G
     Indication: POLYOMAVIRUS-ASSOCIATED NEPHROPATHY
     Dosage: 2 G/KG
     Route: 042
  13. LEFLUNOMIDE. [Suspect]
     Active Substance: LEFLUNOMIDE
     Indication: POLYOMAVIRUS-ASSOCIATED NEPHROPATHY
     Dosage: 10 UNK, UNK
     Dates: start: 20110801
  14. LEFLUNOMIDE. [Suspect]
     Active Substance: LEFLUNOMIDE
     Dosage: 20 UNK, UNK
     Dates: start: 20110901, end: 201111
  15. MYCOPHENOLATE MOFETIL. [Suspect]
     Active Substance: MYCOPHENOLATE MOFETIL
     Dosage: 500 MG/DAY
     Route: 048
     Dates: start: 20110501, end: 201107
  16. PREDNISOLONE. [Suspect]
     Active Substance: PREDNISOLONE
     Indication: TRANSPLANT REJECTION
     Dosage: 10-DAY RECYCLE STARTING AT 60 MG/DAY

REACTIONS (9)
  - Acute respiratory failure [Unknown]
  - BK virus infection [Recovered/Resolved]
  - Polyomavirus-associated nephropathy [Recovered/Resolved]
  - Acute kidney injury [Unknown]
  - Pneumocystis jirovecii pneumonia [Unknown]
  - Septic shock [Unknown]
  - Tubulointerstitial nephritis [Unknown]
  - Multiple organ dysfunction syndrome [Fatal]
  - Transplant rejection [Unknown]
